FAERS Safety Report 9269584 (Version 1)
Quarter: 2013Q2

REPORT INFORMATION
  Report Type: Spontaneous
  Country: US (occurrence: US)
  Receive Date: 20130503
  Receipt Date: 20130503
  Transmission Date: 20140414
  Serious: No
  Sender: FDA-Public Use
  Company Number: US-009507513-1304USA017244

PATIENT
  Age: 61 Year
  Sex: Female

DRUGS (2)
  1. NASONEX [Suspect]
     Indication: EUSTACHIAN TUBE DISORDER
     Dosage: TWO SPRAYS IN EACH NOSTRIL TWICE A DAY
     Route: 045
     Dates: start: 201303
  2. TRAMADOL HYDROCHLORIDE [Concomitant]

REACTIONS (1)
  - Cataract [Unknown]
